FAERS Safety Report 13512920 (Version 1)
Quarter: 2017Q2

REPORT INFORMATION
  Report Type: Spontaneous
  Country: US (occurrence: US)
  Receive Date: 20170504
  Receipt Date: 20170504
  Transmission Date: 20170830
  Serious: Yes (Hospitalization, Other)
  Sender: FDA-Public Use
  Company Number: US-ALVOGEN-2017-ALVOGEN-091717

PATIENT
  Sex: Female
  Weight: 89.8 kg

DRUGS (13)
  1. ATOVAQUONE. [Concomitant]
     Active Substance: ATOVAQUONE
     Indication: PROPHYLAXIS
     Route: 048
     Dates: start: 20161107, end: 20161223
  2. ONDANSETRON [Concomitant]
     Active Substance: ONDANSETRON
     Indication: NAUSEA
     Route: 048
  3. SERTRALINE HYDROCHLORIDE. [Concomitant]
     Active Substance: SERTRALINE HYDROCHLORIDE
     Indication: ANXIETY
     Route: 048
     Dates: start: 20160610
  4. FLUCONAZOLE. [Concomitant]
     Active Substance: FLUCONAZOLE
     Indication: PROPHYLAXIS
     Route: 048
     Dates: start: 20160817, end: 20161223
  5. OXYCODONE [Concomitant]
     Active Substance: OXYCODONE
     Indication: BACK PAIN
     Route: 048
     Dates: start: 20161214
  6. URSODEOXYCHOLIC ACID [Concomitant]
     Active Substance: URSODIOL
     Indication: TRANSAMINASES INCREASED
     Route: 048
     Dates: start: 20161223
  7. CIPROFLOXACIN HYDROCHLORIDE. [Concomitant]
     Active Substance: CIPROFLOXACIN HYDROCHLORIDE
     Indication: PROPHYLAXIS
     Route: 048
     Dates: start: 20161212
  8. ALBUTEROL SULFATE. [Concomitant]
     Active Substance: ALBUTEROL SULFATE
     Indication: ASTHMA
     Route: 055
     Dates: start: 20161117
  9. ACICLOVIR [Concomitant]
     Active Substance: ACYCLOVIR
     Indication: PROPHYLAXIS
     Route: 048
     Dates: start: 20160817
  10. PANTOPRAZOLE SODIUM. [Concomitant]
     Active Substance: PANTOPRAZOLE SODIUM
     Indication: GASTROOESOPHAGEAL REFLUX DISEASE
     Route: 048
     Dates: start: 20160609
  11. MACROBID [Suspect]
     Active Substance: NITROFURANTOIN\NITROFURANTOIN MONOHYDRATE
     Indication: URINARY TRACT INFECTION
  12. MAGNESIUM OXIDE. [Concomitant]
     Active Substance: MAGNESIUM OXIDE
     Indication: PROPHYLAXIS
     Route: 048
     Dates: start: 20160817
  13. PYRIDIUM [Suspect]
     Active Substance: PHENAZOPYRIDINE
     Indication: URINARY TRACT INFECTION

REACTIONS (1)
  - Drug ineffective [Recovered/Resolved]
